FAERS Safety Report 6550823-8 (Version None)
Quarter: 2010Q1

REPORT INFORMATION
  Report Type: 
  Country: None (occurrence: None)
  Receive Date: 20100125
  Receipt Date: 20100121
  Transmission Date: 20100710
  Serious: Yes (Death)
  Sender: FDA-Public Use
  Company Number: PHHY2009GB23204

PATIENT
  Sex: Male
  Weight: 89.2 kg

DRUGS (2)
  1. EXJADE [Suspect]
     Dosage: 10 MG/KG
     Dates: start: 20081107
  2. EXJADE [Suspect]
     Dosage: 20 MG/KG
     Dates: start: 20081218

REACTIONS (2)
  - ANGINA PECTORIS [None]
  - AORTIC STENOSIS [None]
